FAERS Safety Report 4951181-2 (Version None)
Quarter: 2006Q1

REPORT INFORMATION
  Report Type: 
  Country: None (occurrence: None)
  Receive Date: 20060315
  Receipt Date: 20060306
  Transmission Date: 20060701
  Serious: Yes (Hospitalization)
  Sender: FDA-Public Use
  Company Number: DE200512003308

PATIENT
  Age: 66 Year
  Sex: Female
  Weight: 764 kg

DRUGS (10)
  1. GEMZAR [Suspect]
     Indication: PANCREATIC CARCINOMA
     Dosage: 1000 MG/M2, INTRAVENOUS
     Route: 042
     Dates: start: 20040701, end: 20041101
  2. GEMZAR [Suspect]
  3. GEMZAR [Suspect]
  4. GEMZAR [Suspect]
  5. GEMZAR [Suspect]
  6. PANGROL (AMYLASE, BRINASE, LIPASE, PANCREATIN) [Concomitant]
  7. ASPIRIN [Concomitant]
  8. TOREM /GFR/ (TORASEMIDE) [Concomitant]
  9. ZOFRAN [Concomitant]
  10. DEXAMETHASONE TAB [Concomitant]

REACTIONS (5)
  - BUNDLE BRANCH BLOCK LEFT [None]
  - CARDIAC FAILURE [None]
  - CARDIOMEGALY [None]
  - EXTRASYSTOLES [None]
  - MITRAL VALVE INCOMPETENCE [None]
